FAERS Safety Report 9502806 (Version 4)
Quarter: 2013Q4

REPORT INFORMATION
  Report Type: Spontaneous
  Country: RO (occurrence: RO)
  Receive Date: 20130906
  Receipt Date: 20131115
  Transmission Date: 20140711
  Serious: Yes (Death, Life-Threatening, Hospitalization, Other)
  Sender: FDA-Public Use
  Company Number: RO-CELGENEUS-135-21880-13090008

PATIENT
  Age: 78 Year
  Sex: Female
  Weight: 68 kg

DRUGS (21)
  1. REVLIMID [Suspect]
     Indication: PLASMA CELL MYELOMA
     Dosage: 10 MILLIGRAM
     Route: 048
     Dates: start: 20130508, end: 20130802
  2. REVLIMID [Suspect]
     Dosage: 10 MILLIGRAM
     Route: 048
     Dates: start: 20130508, end: 20130723
  3. DEXAMETHASONE [Suspect]
     Indication: PLASMA CELL MYELOMA
     Dosage: 40 MILLIGRAM
     Route: 048
     Dates: start: 20130508, end: 20130802
  4. DEXAMETHASONE [Suspect]
     Dosage: 40 MILLIGRAM
     Route: 048
     Dates: start: 20130508, end: 20130731
  5. MLN 9708 [Suspect]
     Indication: PLASMA CELL MYELOMA
     Dosage: 4 MILLIGRAM
     Route: 048
     Dates: start: 20130508, end: 20130802
  6. MLN 9708 [Suspect]
     Dosage: 4 MILLIGRAM
     Route: 048
     Dates: start: 20130508, end: 20130719
  7. DULCOLAX [Concomitant]
     Indication: PRODUCT USED FOR UNKNOWN INDICATION
     Dosage: 5 MILLIGRAM
     Route: 048
     Dates: start: 20130528, end: 20130604
  8. METAMIZOLE [Concomitant]
     Indication: PRODUCT USED FOR UNKNOWN INDICATION
     Dosage: 2.5 MILLIGRAM
     Route: 041
     Dates: start: 20130703, end: 20130703
  9. BUTYLSCOPOLAMINE [Concomitant]
     Indication: PRODUCT USED FOR UNKNOWN INDICATION
     Dosage: 10 MILLIGRAM
     Route: 065
     Dates: start: 20130703, end: 20130703
  10. SINTROM [Concomitant]
     Indication: PRODUCT USED FOR UNKNOWN INDICATION
     Dosage: 4 MILLIGRAM
     Route: 048
     Dates: start: 20130724, end: 20130802
  11. METOPROLOL [Concomitant]
     Indication: PRODUCT USED FOR UNKNOWN INDICATION
     Dosage: 100 MILLIGRAM
     Route: 048
     Dates: start: 2013, end: 201306
  12. BROFAROMINE [Concomitant]
     Indication: DIARRHOEA
     Dosage: 80 MILLIGRAM
     Route: 041
     Dates: start: 20130802, end: 20130803
  13. ALLOPURINOL [Concomitant]
     Indication: PRODUCT USED FOR UNKNOWN INDICATION
     Dosage: 200 MILLIGRAM
     Route: 065
     Dates: start: 20130802, end: 20130810
  14. RANITIDINE [Concomitant]
     Indication: PRODUCT USED FOR UNKNOWN INDICATION
     Dosage: 100 MILLIGRAM
     Route: 041
     Dates: start: 20130802, end: 20130810
  15. PHYTOMENADIONE [Concomitant]
     Indication: PRODUCT USED FOR UNKNOWN INDICATION
     Dosage: 20 MILLIGRAM
     Route: 041
     Dates: start: 20130802, end: 20130804
  16. TAZOCIN [Concomitant]
     Indication: PRODUCT USED FOR UNKNOWN INDICATION
     Dosage: 13.5 GRAM
     Route: 041
     Dates: start: 20130802, end: 20130804
  17. OLEZIOME [Concomitant]
     Indication: PRODUCT USED FOR UNKNOWN INDICATION
     Dosage: .8 MILLILITER
     Route: 058
     Dates: start: 20130805, end: 20130810
  18. CIPROFLOXACINE [Concomitant]
     Indication: PRODUCT USED FOR UNKNOWN INDICATION
     Dosage: 800 MILLIGRAM
     Route: 041
     Dates: start: 20130805, end: 20130810
  19. POTASSIUM CHLORIDE [Concomitant]
     Indication: PRODUCT USED FOR UNKNOWN INDICATION
     Dosage: 30 MILLIEQUIVALENTS
     Route: 041
     Dates: start: 20130805, end: 20130810
  20. MANITOL [Concomitant]
     Indication: PRODUCT USED FOR UNKNOWN INDICATION
     Dosage: 160 MILLILITER
     Route: 041
     Dates: start: 20130806, end: 20130810
  21. ASPIRINE [Concomitant]
     Indication: ANTICOAGULANT THERAPY
     Dosage: 150 MILLIGRAM
     Route: 065
     Dates: start: 20130508, end: 20130724

REACTIONS (7)
  - Ischaemic stroke [Fatal]
  - Depressed level of consciousness [Fatal]
  - Syncope [Recovered/Resolved]
  - Pancreatitis [Fatal]
  - Disseminated intravascular coagulation [Not Recovered/Not Resolved]
  - Cholecystitis acute [Fatal]
  - Diarrhoea infectious [Recovered/Resolved]
